FAERS Safety Report 11425231 (Version 1)
Quarter: 2015Q3

REPORT INFORMATION
  Report Type: Spontaneous
  Country: AU (occurrence: AU)
  Receive Date: 20150827
  Receipt Date: 20150827
  Transmission Date: 20151125
  Serious: Yes (Hospitalization)
  Sender: FDA-Public Use
  Company Number: AU-MYLANLABS-2015M1028949

PATIENT

DRUGS (1)
  1. PHENYTOIN. [Suspect]
     Active Substance: PHENYTOIN
     Indication: MYOTONIA
     Dosage: 500MG DAILY
     Route: 065

REACTIONS (5)
  - Toxicity to various agents [Recovering/Resolving]
  - Overdose [Recovering/Resolving]
  - Lethargy [Recovering/Resolving]
  - Altered state of consciousness [Recovering/Resolving]
  - Vertigo [Recovering/Resolving]
